FAERS Safety Report 6275573-7 (Version None)
Quarter: 2009Q3

REPORT INFORMATION
  Report Type: 
  Country: None (occurrence: None)
  Receive Date: 20090721
  Receipt Date: 20090713
  Transmission Date: 20100115
  Serious: Yes (Death)
  Sender: FDA-Public Use
  Company Number: US-GILEAD-2009-0023061

PATIENT
  Sex: Male
  Weight: 68.1 kg

DRUGS (9)
  1. LETAIRIS [Suspect]
     Indication: PULMONARY ARTERIAL HYPERTENSION
     Route: 048
     Dates: start: 20080415
  2. FUROSEMIDE [Concomitant]
  3. ADVAIR HFA [Concomitant]
  4. SPIRIVA [Concomitant]
  5. PREDNISONE TAB [Concomitant]
  6. BACTRIM DS [Concomitant]
  7. POTASSIUM CHLORIDE [Concomitant]
  8. LORAZEPAM [Concomitant]
  9. SENNA [Concomitant]

REACTIONS (1)
  - DEATH [None]
